FAERS Safety Report 14529994 (Version 1)
Quarter: 2018Q1

REPORT INFORMATION
  Report Type: Spontaneous
  Country: US (occurrence: US)
  Receive Date: 20180214
  Receipt Date: 20180214
  Transmission Date: 20180509
  Serious: No
  Sender: FDA-Public Use
  Company Number: US-IGSA-SR10005567

PATIENT
  Age: 76 Year
  Sex: Male
  Weight: 57.1 kg

DRUGS (8)
  1. SYMBICORT [Concomitant]
     Active Substance: BUDESONIDE\FORMOTEROL FUMARATE DIHYDRATE
  2. SPIRIVA [Concomitant]
     Active Substance: TIOTROPIUM BROMIDE MONOHYDRATE
  3. ALBUTEROL SULFATE. [Concomitant]
     Active Substance: ALBUTEROL SULFATE
  4. PERFOROMIST [Concomitant]
     Active Substance: FORMOTEROL FUMARATE DIHYDRATE
  5. PROLASTIN-C [Suspect]
     Active Substance: .ALPHA.1-PROTEINASE INHIBITOR HUMAN
     Dosage: UNK
  6. PROLASTIN-C [Suspect]
     Active Substance: .ALPHA.1-PROTEINASE INHIBITOR HUMAN
     Indication: ALPHA-1 ANTI-TRYPSIN DEFICIENCY
     Dosage: 3426 MG, Q.WK.
     Route: 042
     Dates: start: 20150101
  7. OXYGEN. [Concomitant]
     Active Substance: OXYGEN
  8. PREDNISONE. [Concomitant]
     Active Substance: PREDNISONE
     Dosage: 2.5 MG, UNKNOWN

REACTIONS (2)
  - Rash [Recovered/Resolved]
  - Pruritus generalised [Recovered/Resolved]

NARRATIVE: CASE EVENT DATE: 20171124
